FAERS Safety Report 8539824-8 (Version None)
Quarter: 2012Q3

REPORT INFORMATION
  Report Type: 
  Country: None (occurrence: None)
  Receive Date: 20120726
  Receipt Date: 20120724
  Transmission Date: 20120928
  Serious: Yes (Death)
  Sender: FDA-Public Use
  Company Number: SE-SANOFI-AVENTIS-2012SA052488

PATIENT
  Age: 73 Year
  Sex: Male
  Weight: 86 kg

DRUGS (7)
  1. BENZYDAMINE [Concomitant]
     Dates: start: 20120709
  2. BUDESONIDE [Concomitant]
     Indication: CHRONIC OBSTRUCTIVE PULMONARY DISEASE
     Dates: start: 20120105
  3. TIOTROPIUM BROMIDE [Concomitant]
     Indication: CHRONIC OBSTRUCTIVE PULMONARY DISEASE
     Dates: start: 20120105
  4. BLINDED THERAPY [Suspect]
     Indication: NON-SMALL CELL LUNG CANCER STAGE IV
     Dosage: EVERY 3 WEEKS, DAY 1 OF 21 DAY CYCLE
     Route: 042
     Dates: start: 20120628, end: 20120628
  5. ACETAMINOPHEN [Concomitant]
     Indication: PAIN
     Dates: start: 20120314
  6. EZETIMIBE [Concomitant]
     Dates: start: 20111027
  7. DOCETAXEL [Suspect]
     Indication: NON-SMALL CELL LUNG CANCER STAGE IV
     Dosage: EVERY 3 WEEKS, DAY 1 OF 21 DAY CYCLE
     Route: 041
     Dates: start: 20120628, end: 20120628

REACTIONS (1)
  - SUDDEN DEATH [None]
